FAERS Safety Report 5950281-8 (Version None)
Quarter: 2008Q4

REPORT INFORMATION
  Report Type: 
  Country: None (occurrence: None)
  Receive Date: 20081022
  Receipt Date: 20080724
  Transmission Date: 20090506
  Serious: No
  Sender: FDA-Public Use
  Company Number: ALL1-2008-01922

PATIENT
  Age: 9 Year
  Sex: Male
  Weight: 32.2 kg

DRUGS (3)
  1. VYVANSE [Suspect]
     Indication: ATTENTION DEFICIT/HYPERACTIVITY DISORDER
     Dosage: 30 MG, 1X/DAY:QD, ORAL ; 1X/DAY:QD ONE HALF OF A 30 MG CAPSULE, ORAL
     Route: 048
     Dates: start: 20080604, end: 20080606
  2. VYVANSE [Suspect]
     Indication: ATTENTION DEFICIT/HYPERACTIVITY DISORDER
     Dosage: 30 MG, 1X/DAY:QD, ORAL ; 1X/DAY:QD ONE HALF OF A 30 MG CAPSULE, ORAL
     Route: 048
     Dates: start: 20080607, end: 20080611
  3. CLARITIN /00413701/ (GLICLAZIDE) [Concomitant]

REACTIONS (2)
  - DRUG EFFECT INCREASED [None]
  - DRUG PRESCRIBING ERROR [None]
